FAERS Safety Report 7019569-6 (Version None)
Quarter: 2010Q3

REPORT INFORMATION
  Report Type: 
  Country: None (occurrence: None)
  Receive Date: 20100928
  Receipt Date: 20100928
  Transmission Date: 20110219
  Serious: Yes (Life-Threatening, Hospitalization)
  Sender: FDA-Public Use
  Company Number: None

PATIENT
  Age: 67 Year
  Sex: Female
  Weight: 66.2252 kg

DRUGS (5)
  1. TRIBENZOR [Suspect]
     Indication: HYPERTENSION
     Dosage: 1 TABLET DAILY PO
     Route: 048
     Dates: start: 20100914, end: 20100921
  2. ACIPHEXC [Concomitant]
  3. LIPITOR [Concomitant]
  4. DETROL LA [Concomitant]
  5. NITROFUR [Concomitant]

REACTIONS (10)
  - AMNESIA [None]
  - BLOOD POTASSIUM DECREASED [None]
  - EYE ROLLING [None]
  - FALL [None]
  - JOINT LOCK [None]
  - LOSS OF CONSCIOUSNESS [None]
  - MUSCLE TWITCHING [None]
  - PROTRUSION TONGUE [None]
  - SKIN DISCOLOURATION [None]
  - STARING [None]
